FAERS Safety Report 9192582 (Version 1)
Quarter: 2013Q1

REPORT INFORMATION
  Report Type: Spontaneous
  Country: IT (occurrence: None)
  Receive Date: 20130325
  Receipt Date: 20130325
  Transmission Date: 20140127
  Serious: Yes (Other)
  Sender: FDA-Public Use
  Company Number: AUR-APL-2013-02562

PATIENT
  Age: 58 Year
  Sex: Male

DRUGS (3)
  1. AMOXICILLIN (AMOXICILLIN) [Suspect]
     Indication: HELICOBACTER INFECTION
     Dosage: (2 DOSAGE FORMS, 1 D), ORAL
     Route: 048
     Dates: start: 20121223, end: 20121230
  2. AMOXICILLIN (AMOXICILLIN) [Suspect]
     Indication: HELICOBACTER INFECTION
     Dosage: (2 DOSAGE FORMS, 1 D), ORAL
     Route: 048
     Dates: start: 20121223, end: 20121230
  3. CLARITHROMYCIN (CLARITHROMYCIN) [Suspect]

REACTIONS (4)
  - Tongue oedema [None]
  - Dry mouth [None]
  - Glossitis [None]
  - Hypovitaminosis [None]
